FAERS Safety Report 15030692 (Version 1)
Quarter: 2018Q2

REPORT INFORMATION
  Report Type: Spontaneous
  Country: US (occurrence: US)
  Receive Date: 20180529
  Receipt Date: 20180529
  Transmission Date: 20180711
  Serious: Yes (Disabling)
  Sender: FDA-Public Use
  Company Number: None

PATIENT
  Age: 75 Year
  Sex: Female
  Weight: 96.62 kg

DRUGS (19)
  1. LANAPROST [Concomitant]
  2. ALLERGA [Concomitant]
  3. MAALOX ANTACID [Concomitant]
     Active Substance: ALUMINUM HYDROXIDE\DIMETHICONE\MAGNESIUM HYDROXIDE
  4. PROLIA [Concomitant]
     Active Substance: DENOSUMAB
  5. LASIX [Concomitant]
     Active Substance: FUROSEMIDE
  6. REFRESH [Concomitant]
     Active Substance: UNSPECIFIED INGREDIENT
  7. TUMS [Concomitant]
     Active Substance: CALCIUM CARBONATE
  8. TOPIRAMATE 25MG TABLETS [Suspect]
     Active Substance: TOPIRAMATE
     Indication: HEADACHE
     Dosage: ?          QUANTITY:2 DF DOSAGE FORM;?
     Route: 048
  9. PLAVIX [Concomitant]
     Active Substance: CLOPIDOGREL BISULFATE
  10. ASPIRIN. [Concomitant]
     Active Substance: ASPIRIN
  11. CALCIUM [Concomitant]
     Active Substance: CALCIUM
  12. PRINIVIL WITH HCTZ [Concomitant]
  13. BENADRYL [Concomitant]
     Active Substance: DIPHENHYDRAMINE HYDROCHLORIDE
  14. METOPROLOL. [Concomitant]
     Active Substance: METOPROLOL
  15. THYROID [Concomitant]
     Active Substance: LEVOTHYROXINE\LIOTHYRONINE
  16. WELLBUTRIN XL [Concomitant]
     Active Substance: BUPROPION HYDROCHLORIDE
  17. VITAMIN D [Concomitant]
     Active Substance: CHOLECALCIFEROL
  18. TYLENOL [Concomitant]
     Active Substance: ACETAMINOPHEN
  19. POTASSIUM [Suspect]
     Active Substance: POTASSIUM

REACTIONS (7)
  - Retching [None]
  - Hypoaesthesia [None]
  - Lip ulceration [None]
  - Vomiting [None]
  - Gingival ulceration [None]
  - Diarrhoea [None]
  - Oral discharge [None]

NARRATIVE: CASE EVENT DATE: 20170913
